FAERS Safety Report 5079103-7 (Version None)
Quarter: 2006Q3

REPORT INFORMATION
  Report Type: 
  Country: None (occurrence: None)
  Receive Date: 20060808
  Receipt Date: 20060731
  Transmission Date: 20061208
  Serious: Yes (Other)
  Sender: FDA-Public Use
  Company Number: GXKR2006IT04230

PATIENT
  Age: 36 Year
  Sex: Female

DRUGS (2)
  1. RIBAVIRIN [Suspect]
     Indication: HEPATITIS C VIRUS
  2. PEGASYS [Suspect]
     Indication: HEPATITIS C VIRUS
     Dosage: INJECTION NOS

REACTIONS (2)
  - GASTRIC DISORDER [None]
  - ROSACEA [None]
